FAERS Safety Report 8411626 (Version 2)
Quarter: 2016Q2

REPORT INFORMATION
  Report Type: Report from Study
  Country: US (occurrence: US)
  Receive Date: 20120217
  Receipt Date: 20160504
  Transmission Date: 20160815
  Serious: Yes (Hospitalization)
  Sender: FDA-Public Use
  Company Number: US-PFIZER INC-2012034925

PATIENT
  Age: 58 Year
  Sex: Female
  Weight: 76 kg

DRUGS (3)
  1. AXITINIB [Suspect]
     Active Substance: AXITINIB
     Indication: NEUROENDOCRINE TUMOUR
     Dosage: 5 MG, 2X/DAY
     Dates: start: 20120126, end: 20120206
  2. PLAVIX [Concomitant]
     Active Substance: CLOPIDOGREL BISULFATE
     Dosage: 75 MG, DAILY
  3. SANDOSTATIN LAR DEPOT [Concomitant]
     Active Substance: OCTREOTIDE ACETATE
     Dosage: 30 MG, Q 28 DAYS

REACTIONS (4)
  - Neurological symptom [Recovered/Resolved]
  - Cerebral haematoma [Unknown]
  - Seizure [Recovered/Resolved]
  - Systolic hypertension [Unknown]

NARRATIVE: CASE EVENT DATE: 20120206
